FAERS Safety Report 21500414 (Version 2)
Quarter: 2022Q4

REPORT INFORMATION
  Report Type: Spontaneous
  Country: JP (occurrence: JP)
  Receive Date: 20221025
  Receipt Date: 20221102
  Transmission Date: 20230113
  Serious: Yes (Other)
  Sender: FDA-Public Use
  Company Number: JP-NOVARTISPH-NVSJ2022JP099467

PATIENT
  Age: 15 Year
  Sex: Male

DRUGS (2)
  1. GEMCITABINE [Suspect]
     Active Substance: GEMCITABINE
     Indication: Osteosarcoma
     Dosage: UNK
     Route: 065
  2. DOCETAXEL [Suspect]
     Active Substance: DOCETAXEL
     Indication: Osteosarcoma
     Dosage: UNK
     Route: 065

REACTIONS (4)
  - Metastases to lung [Recovering/Resolving]
  - Malignant neoplasm progression [Recovering/Resolving]
  - Blood alkaline phosphatase increased [Recovering/Resolving]
  - Product use in unapproved indication [Unknown]
